FAERS Safety Report 5932724-9 (Version None)
Quarter: 2008Q4

REPORT INFORMATION
  Report Type: 
  Country: None (occurrence: None)
  Receive Date: 20081027
  Receipt Date: 20081027
  Transmission Date: 20090506
  Serious: Yes (Hospitalization)
  Sender: FDA-Public Use
  Company Number: None

PATIENT
  Sex: Male
  Weight: 94.3482 kg

DRUGS (13)
  1. LENALIDOMIDE [Suspect]
     Indication: MULTIPLE MYELOMA
     Dosage: 10 MG QD X 21 OF 28 D 047
     Dates: start: 20080910, end: 20080930
  2. LENALIDOMIDE [Suspect]
     Indication: MULTIPLE MYELOMA
     Dosage: 10 MG QD X 21 OF 28 D 047
     Dates: start: 20081008, end: 20081022
  3. BENDAMUSTINE [Suspect]
     Dosage: 314MG C1-312MG C2 DAYS 1+2 OF 28  O41
     Dates: start: 20080910, end: 20080911
  4. BENDAMUSTINE [Suspect]
     Dosage: 314MG C1-312MG C2 DAYS 1+2 OF 28  O41
     Dates: start: 20081008, end: 20081009
  5. COUMADIN [Concomitant]
  6. PROTONIX [Concomitant]
  7. DAPSONE [Concomitant]
  8. LEXAPRO [Concomitant]
  9. NIFEDPINE [Concomitant]
  10. TRICOR [Concomitant]
  11. FLOMAX [Concomitant]
  12. OXYCODONE HCL [Concomitant]
  13. FENTANYL [Concomitant]

REACTIONS (8)
  - BLOOD PRESSURE DIASTOLIC DECREASED [None]
  - DYSPNOEA EXERTIONAL [None]
  - ELECTROCARDIOGRAM QT PROLONGED [None]
  - ELECTROCARDIOGRAM ST-T CHANGE [None]
  - FATIGUE [None]
  - HEART RATE IRREGULAR [None]
  - PALLOR [None]
  - VENTRICULAR EXTRASYSTOLES [None]
